FAERS Safety Report 19041127 (Version 2)
Quarter: 2021Q1

REPORT INFORMATION
  Report Type: Spontaneous
  Country: US (occurrence: US)
  Receive Date: 20210323
  Receipt Date: 20210331
  Transmission Date: 20210420
  Serious: No
  Sender: FDA-Public Use
  Company Number: US-AMGEN-USASP2021043259

PATIENT
  Sex: Male

DRUGS (4)
  1. OTEZLA [Suspect]
     Active Substance: APREMILAST
     Indication: PSORIASIS
     Dosage: 30 MILLIGRAM, BID
     Route: 048
     Dates: start: 20190121
  2. CLOBETASOL [Concomitant]
     Active Substance: CLOBETASOL
  3. DESONIDE. [Concomitant]
     Active Substance: DESONIDE
  4. PIMECROLIMUS. [Concomitant]
     Active Substance: PIMECROLIMUS

REACTIONS (1)
  - Psoriasis [Not Recovered/Not Resolved]
